FAERS Safety Report 6041168-3 (Version None)
Quarter: 2009Q1

REPORT INFORMATION
  Report Type: 
  Country: None (occurrence: None)
  Receive Date: 20090116
  Receipt Date: 20080910
  Transmission Date: 20090719
  Serious: No
  Sender: FDA-Public Use
  Company Number: US-BRISTOL-MYERS SQUIBB COMPANY-14330211

PATIENT
  Age: 45 Year
  Sex: Female
  Weight: 59 kg

DRUGS (5)
  1. ABILIFY [Suspect]
     Indication: BIPOLAR DISORDER
  2. EFFEXOR [Suspect]
  3. VICODIN [Concomitant]
  4. BLACK COHOSH [Concomitant]
  5. VALERIAN [Concomitant]

REACTIONS (1)
  - NIGHTMARE [None]
